FAERS Safety Report 9625527 (Version 1)
Quarter: 2013Q4

REPORT INFORMATION
  Report Type: Spontaneous
  Country: US (occurrence: None)
  Receive Date: 20131015
  Receipt Date: 20131015
  Transmission Date: 20140711
  Serious: No
  Sender: FDA-Public Use
  Company Number: None

PATIENT
  Age: 89 Year
  Sex: Female

DRUGS (10)
  1. EYELEA [Suspect]
     Indication: MACULAR DEGENERATION
     Dates: start: 20130404
  2. PRAVASTATIN [Concomitant]
  3. ISOSORBIDE [Concomitant]
  4. POTASSIUM [Concomitant]
  5. DIOVAN HCT [Concomitant]
  6. RANITIDINE [Concomitant]
  7. DETROL [Concomitant]
  8. ASPIRIN [Concomitant]
  9. LASIX [Concomitant]
  10. LABVETALOL [Concomitant]

REACTIONS (2)
  - Visual acuity reduced [None]
  - Uveitis [None]
